FAERS Safety Report 22212142 (Version 3)
Quarter: 2023Q2

REPORT INFORMATION
  Report Type: Report from Study
  Country: CL (occurrence: CL)
  Receive Date: 20230414
  Receipt Date: 20230623
  Transmission Date: 20230722
  Serious: Yes (Other)
  Sender: FDA-Public Use
  Company Number: CL-002147023-NVSC2023CL012824

PATIENT
  Age: 48 Year
  Sex: Female

DRUGS (6)
  1. COSENTYX [Suspect]
     Active Substance: SECUKINUMAB
     Indication: Psoriatic arthropathy
     Dosage: 300 MG, QW
     Route: 058
     Dates: start: 20230106
  2. COSENTYX [Suspect]
     Active Substance: SECUKINUMAB
     Dosage: UNK
     Route: 065
     Dates: start: 20230113
  3. COSENTYX [Suspect]
     Active Substance: SECUKINUMAB
     Dosage: UNK
     Route: 065
     Dates: start: 20230203
  4. COSENTYX [Suspect]
     Active Substance: SECUKINUMAB
     Dosage: 300 MG, QMO
     Route: 058
     Dates: start: 20230305
  5. COSENTYX [Suspect]
     Active Substance: SECUKINUMAB
     Dosage: 300 MG, QMO
     Route: 058
  6. COSENTYX [Suspect]
     Active Substance: SECUKINUMAB
     Dosage: 300 MG
     Route: 065
     Dates: start: 20230505

REACTIONS (29)
  - Vein rupture [Unknown]
  - Asphyxia [Unknown]
  - Hyperhidrosis [Unknown]
  - Injection site swelling [Unknown]
  - Injection site haematoma [Unknown]
  - Pruritus [Unknown]
  - Pigmentation disorder [Unknown]
  - Headache [Unknown]
  - Injection site injury [Unknown]
  - Inflammation [Unknown]
  - Pain [Not Recovered/Not Resolved]
  - Blood glucose increased [Unknown]
  - Blood cholesterol increased [Unknown]
  - Gait disturbance [Unknown]
  - Muscle rigidity [Unknown]
  - Malaise [Unknown]
  - Vasodilatation [Unknown]
  - Contusion [Unknown]
  - Illness [Unknown]
  - Secretion discharge [Unknown]
  - Fibromyalgia [Unknown]
  - Pain of skin [Unknown]
  - Hair disorder [Unknown]
  - Throat tightness [Unknown]
  - Oropharyngeal pain [Unknown]
  - Insomnia [Unknown]
  - Abdominal pain upper [Unknown]
  - Nasopharyngitis [Unknown]
  - Cough [Unknown]

NARRATIVE: CASE EVENT DATE: 20230113
